FAERS Safety Report 6157661-9 (Version None)
Quarter: 2009Q2

REPORT INFORMATION
  Report Type: 
  Country: None (occurrence: None)
  Receive Date: 20090416
  Receipt Date: 20090407
  Transmission Date: 20091009
  Serious: Yes (Death, Hospitalization, Other)
  Sender: FDA-Public Use
  Company Number: GR-ABBOTT-09P-066-0559984-00

PATIENT
  Sex: Female
  Weight: 55 kg

DRUGS (13)
  1. KLARICID [Suspect]
     Indication: BRONCHITIS
     Route: 048
     Dates: start: 20090101
  2. VASSOR [Interacting]
     Indication: HYPERLIPIDAEMIA
     Route: 048
     Dates: start: 20081001
  3. SPIRIVA [Concomitant]
     Indication: RESPIRATORY DISORDER
     Route: 055
  4. SPIRIVA [Concomitant]
  5. ALVEFCO [Concomitant]
     Indication: BRONCHITIS
     Route: 055
  6. ALVEFCO [Concomitant]
  7. DILATREND [Concomitant]
     Indication: HYPERTENSION
     Route: 048
     Dates: start: 20080501
  8. NITRONG [Concomitant]
     Indication: HYPERTENSION
     Dosage: PATCH
     Route: 062
     Dates: start: 20080501
  9. NITRONG [Concomitant]
     Route: 048
     Dates: start: 20080501
  10. SALOSPIR [Concomitant]
     Indication: DRUG USE FOR UNKNOWN INDICATION
     Route: 048
  11. CONTROLLOC [Concomitant]
     Indication: DRUG USE FOR UNKNOWN INDICATION
     Route: 048
  12. CLOPIDOGREL [Concomitant]
     Indication: DRUG USE FOR UNKNOWN INDICATION
     Route: 048
  13. OLARTAN [Concomitant]
     Indication: DRUG USE FOR UNKNOWN INDICATION
     Route: 048

REACTIONS (4)
  - DRUG INTERACTION [None]
  - MULTI-ORGAN FAILURE [None]
  - RENAL FAILURE [None]
  - RHABDOMYOLYSIS [None]
